FAERS Safety Report 12701909 (Version 1)
Quarter: 2016Q3

REPORT INFORMATION
  Report Type: Spontaneous
  Country: US (occurrence: US)
  Receive Date: 20160831
  Receipt Date: 20160831
  Transmission Date: 20161109
  Serious: No
  Sender: FDA-Public Use
  Company Number: US-JAZZ-2016-US-007378

PATIENT
  Sex: Female

DRUGS (47)
  1. XYREM [Suspect]
     Active Substance: SODIUM OXYBATE
     Dosage: 3.75 G, BID
     Route: 048
     Dates: start: 201108, end: 201109
  2. CALMS FORTE [Concomitant]
  3. ATORVASTATIN [Concomitant]
     Active Substance: ATORVASTATIN
  4. SINGULAIR [Concomitant]
     Active Substance: MONTELUKAST SODIUM
  5. TREXIMET [Concomitant]
     Active Substance: NAPROXEN SODIUM\SUMATRIPTAN SUCCINATE
  6. VICKS NYQUIL [Concomitant]
     Active Substance: ACETAMINOPHEN\DEXTROMETHORPHAN HYDROBROMIDE\DOXYLAMINE SUCCINATE
  7. XYREM [Suspect]
     Active Substance: SODIUM OXYBATE
     Dosage: 2.25 G, BID
     Route: 048
     Dates: start: 201108, end: 201108
  8. EPIPEN [Concomitant]
     Active Substance: EPINEPHRINE
  9. KETOROLAC TROMETHALINE [Concomitant]
  10. PROMETHAZINE [Concomitant]
     Active Substance: PROMETHAZINE\PROMETHAZINE HYDROCHLORIDE
  11. DULCOLAX NOS [Concomitant]
     Active Substance: BISACODYL OR DOCUSATE SODIUM
  12. MULTIVITAMIN [Concomitant]
     Active Substance: VITAMINS
  13. OPANA [Concomitant]
     Active Substance: OXYMORPHONE HYDROCHLORIDE
  14. ASPIRIN. [Concomitant]
     Active Substance: ASPIRIN
  15. XYREM [Suspect]
     Active Substance: SODIUM OXYBATE
     Indication: NARCOLEPSY
     Dosage: 2.25 G, BID
     Route: 048
     Dates: start: 200803, end: 200804
  16. XYREM [Suspect]
     Active Substance: SODIUM OXYBATE
     Dosage: 2.25 G, BID
     Route: 048
     Dates: start: 201011, end: 2011
  17. XYREM [Suspect]
     Active Substance: SODIUM OXYBATE
     Dosage: 4.5 G, BID
     Route: 048
     Dates: start: 201109
  18. HYDROXYZINE HCL [Concomitant]
     Active Substance: HYDROXYZINE HYDROCHLORIDE
  19. METAXALONE. [Concomitant]
     Active Substance: METAXALONE
  20. ULTRAM [Concomitant]
     Active Substance: TRAMADOL HYDROCHLORIDE
  21. LIDODERM [Concomitant]
     Active Substance: LIDOCAINE
  22. PROTONIX [Concomitant]
     Active Substance: PANTOPRAZOLE SODIUM
  23. VOLTAREN [Concomitant]
     Active Substance: DICLOFENAC SODIUM
  24. CLONAZEPAM. [Concomitant]
     Active Substance: CLONAZEPAM
  25. XYREM [Suspect]
     Active Substance: SODIUM OXYBATE
     Dosage: 3 G, BID
     Route: 048
     Dates: start: 200804, end: 200806
  26. DICLOFENAC [Concomitant]
     Active Substance: DICLOFENAC
  27. DIPHENHYDRAMINE. [Concomitant]
     Active Substance: DIPHENHYDRAMINE
  28. GUAIFENESIN. [Concomitant]
     Active Substance: GUAIFENESIN
  29. PEPTO-BISMOL [Concomitant]
     Active Substance: BISMUTH SUBSALICYLATE
  30. PROVIGIL [Concomitant]
     Active Substance: MODAFINIL
  31. ADDERALL [Concomitant]
     Active Substance: AMPHETAMINE ASPARTATE\AMPHETAMINE SULFATE\DEXTROAMPHETAMINE SACCHARATE\DEXTROAMPHETAMINE SULFATE
  32. MEGESTROL ACETATE. [Concomitant]
     Active Substance: MEGESTROL ACETATE
  33. METHYLPHENIDATE. [Concomitant]
     Active Substance: METHYLPHENIDATE
  34. NORCO [Concomitant]
     Active Substance: ACETAMINOPHEN\HYDROCODONE BITARTRATE
  35. NORVASC [Concomitant]
     Active Substance: AMLODIPINE BESYLATE
  36. PREDNISONE. [Concomitant]
     Active Substance: PREDNISONE
  37. PROAIR HFA [Concomitant]
     Active Substance: ALBUTEROL SULFATE
  38. FENTANYL. [Concomitant]
     Active Substance: FENTANYL
  39. LYRICA [Concomitant]
     Active Substance: PREGABALIN
  40. LIDOCAINE. [Concomitant]
     Active Substance: LIDOCAINE
  41. XYREM [Suspect]
     Active Substance: SODIUM OXYBATE
     Dosage: 4.5 G, BID
     Route: 048
     Dates: start: 200806, end: 2008
  42. FENTANYL. [Concomitant]
     Active Substance: FENTANYL
  43. HYDROCODONE [Concomitant]
     Active Substance: HYDROCODONE
  44. ZANAFLEX [Concomitant]
     Active Substance: TIZANIDINE HYDROCHLORIDE
  45. TRAZODONE HYDROCHLORIDE. [Concomitant]
     Active Substance: TRAZODONE HYDROCHLORIDE
  46. GABAPENTIN. [Concomitant]
     Active Substance: GABAPENTIN
  47. AMITIZA [Concomitant]
     Active Substance: LUBIPROSTONE

REACTIONS (1)
  - Libido decreased [Unknown]
